FAERS Safety Report 9123725 (Version 3)
Quarter: 2013Q1

REPORT INFORMATION
  Report Type: Spontaneous
  Country: ES (occurrence: ES)
  Receive Date: 20130227
  Receipt Date: 20130301
  Transmission Date: 20140127
  Serious: Yes (Other)
  Sender: FDA-Public Use
  Company Number: ES-ROCHE-1195890

PATIENT
  Age: 55 Year
  Sex: Male
  Weight: 63 kg

DRUGS (3)
  1. MABTHERA [Suspect]
     Indication: DIFFUSE LARGE B-CELL LYMPHOMA
     Route: 042
     Dates: start: 20130213
  2. PARACETAMOL [Concomitant]
     Indication: PREMEDICATION
     Route: 042
     Dates: start: 20130213
  3. DEXCHLORPHENIRAMINE [Concomitant]
     Indication: PREMEDICATION
     Route: 042
     Dates: start: 20130213

REACTIONS (1)
  - Sinus bradycardia [Recovered/Resolved]
